FAERS Safety Report 8119598-5 (Version None)
Quarter: 2012Q1

REPORT INFORMATION
  Report Type: 
  Country: None (occurrence: None)
  Receive Date: 20120207
  Receipt Date: 20120131
  Transmission Date: 20120608
  Serious: Yes (Hospitalization)
  Sender: FDA-Public Use
  Company Number: US-US-EMD SERONO, INC.-7110829

PATIENT
  Sex: Female

DRUGS (1)
  1. REBIF [Suspect]
     Indication: MULTIPLE SCLEROSIS
     Route: 058
     Dates: start: 20100602

REACTIONS (4)
  - BLOOD GLUCOSE ABNORMAL [None]
  - NEPHROLITHIASIS [None]
  - CHOLECYSTECTOMY [None]
  - INJECTION SITE ERYTHEMA [None]
